FAERS Safety Report 10191999 (Version 1)
Quarter: 2014Q2

REPORT INFORMATION
  Report Type: Spontaneous
  Country: GB (occurrence: None)
  Receive Date: 20140521
  Receipt Date: 20140521
  Transmission Date: 20141212
  Serious: Yes (Hospitalization, Other)
  Sender: FDA-Public Use
  Company Number: AUR-APL-2014-05854

PATIENT
  Age: 30 Year
  Sex: Female
  Weight: 55 kg

DRUGS (2)
  1. CIPROFLOXACIN (CIPROFLOXACIN) [Suspect]
     Indication: PRODUCT USED FOR UNKNOWN INDICATION
  2. CLARITHROMYCIN (CLARITHROMYCIN) [Suspect]
     Indication: EAR INFECTION
     Route: 048

REACTIONS (5)
  - Dyspnoea [None]
  - Tinnitus [None]
  - Stoma site pain [None]
  - Anxiety [None]
  - Drug interaction [None]
